FAERS Safety Report 4679557-1 (Version None)
Quarter: 2005Q2

REPORT INFORMATION
  Report Type: 
  Country: None (occurrence: None)
  Receive Date: 20050602
  Receipt Date: 20050525
  Transmission Date: 20051028
  Serious: Yes (Life-Threatening)
  Sender: FDA-Public Use
  Company Number: 200514908GDDC

PATIENT
  Age: 69 Year
  Sex: Male

DRUGS (8)
  1. FRUSEMIDE [Suspect]
     Indication: HYPERTENSION
     Route: 048
  2. SPIRONOLACTONE [Suspect]
     Indication: HYPERTENSION
     Route: 048
  3. DIGOXIN [Concomitant]
     Route: 048
  4. METFORMIN [Concomitant]
  5. NEBIVOLOL [Concomitant]
     Route: 048
  6. RAMIPRIL [Concomitant]
  7. SIMVASTATIN [Concomitant]
  8. WARFARIN SODIUM [Concomitant]

REACTIONS (1)
  - BLOOD POTASSIUM INCREASED [None]
